FAERS Safety Report 10511498 (Version 2)
Quarter: 2014Q4

REPORT INFORMATION
  Report Type: Spontaneous
  Country: US (occurrence: US)
  Receive Date: 20141010
  Receipt Date: 20141215
  Transmission Date: 20150528
  Serious: Yes (Hospitalization)
  Sender: FDA-Public Use
  Company Number: US-BAYER-2014-149369

PATIENT
  Age: 26 Year
  Sex: Female
  Weight: 54.88 kg

DRUGS (4)
  1. PRILOSEC [Concomitant]
     Active Substance: OMEPRAZOLE MAGNESIUM
  2. ACETAMINOPHEN W/HYDROCODONE [Concomitant]
     Active Substance: ACETAMINOPHEN\HYDROCODONE
  3. MIRENA [Suspect]
     Active Substance: LEVONORGESTREL
     Indication: CONTRACEPTION
     Dosage: 20 MCG/24HR, CONT
     Route: 015
     Dates: start: 20100829, end: 20130618
  4. PENICILLIN [Concomitant]
     Active Substance: PENICILLIN

REACTIONS (3)
  - Uterine perforation [None]
  - Injury [None]
  - Pain [None]

NARRATIVE: CASE EVENT DATE: 201306
